FAERS Safety Report 8137836-X (Version None)
Quarter: 2012Q1

REPORT INFORMATION
  Report Type: 
  Country: None (occurrence: None)
  Receive Date: 20120215
  Receipt Date: 20120208
  Transmission Date: 20120608
  Serious: Yes (Hospitalization)
  Sender: FDA-Public Use
  Company Number: US-BAYER-2011-102215

PATIENT
  Age: 30 Year
  Sex: Female
  Weight: 57 kg

DRUGS (1)
  1. YAZ [Suspect]
     Dosage: UNK
     Dates: start: 20090701, end: 20090901

REACTIONS (4)
  - PULMONARY EMBOLISM [None]
  - DYSPNOEA [None]
  - PNEUMONIA [None]
  - INJURY [None]
